FAERS Safety Report 8413073 (Version 2)
Quarter: 2013Q1

REPORT INFORMATION
  Report Type: Spontaneous
  Country: US (occurrence: US)
  Receive Date: 20120217
  Receipt Date: 20130218
  Transmission Date: 20140127
  Serious: No
  Sender: FDA-Public Use
  Company Number: US-ABBOTT-11P-163-0840688-00

PATIENT
  Age: 59 Year
  Sex: Female
  Weight: 67.65 kg

DRUGS (5)
  1. SIMCOR [Suspect]
     Indication: BLOOD CHOLESTEROL INCREASED
     Dosage: PATIENT NOT SURE,  500/?MG
     Dates: start: 201106, end: 20110719
  2. DIOVAN [Concomitant]
     Indication: HYPERTENSION
  3. BETAMOL EYE DROPS [Concomitant]
     Indication: GLAUCOMA
  4. CALCIUM [Concomitant]
     Indication: MINERAL SUPPLEMENTATION
  5. ZINC [Concomitant]
     Indication: MINERAL SUPPLEMENTATION

REACTIONS (4)
  - Paraesthesia [Recovered/Resolved]
  - Heart rate increased [Recovered/Resolved]
  - Feeling hot [Recovered/Resolved]
  - Flushing [Unknown]
